FAERS Safety Report 11813974 (Version 9)
Quarter: 2018Q2

REPORT INFORMATION
  Report Type: Report from Study
  Country: None (occurrence: US)
  Receive Date: 20151209
  Receipt Date: 20180514
  Transmission Date: 20180711
  Serious: Yes (Hospitalization, Other)
  Sender: FDA-Public Use
  Company Number: US-ABBVIE-15K-163-1510057-00

PATIENT
  Age: 64 Year
  Sex: Female
  Weight: 45.63 kg

DRUGS (17)
  1. AMBIEN [Concomitant]
     Active Substance: ZOLPIDEM TARTRATE
     Indication: PRODUCT USED FOR UNKNOWN INDICATION
  2. PREDNISONE. [Concomitant]
     Active Substance: PREDNISONE
     Indication: PRODUCT USED FOR UNKNOWN INDICATION
  3. ZOLPIDEM [Concomitant]
     Active Substance: ZOLPIDEM\ZOLPIDEM TARTRATE
     Indication: PRODUCT USED FOR UNKNOWN INDICATION
  4. HUMIRA [Suspect]
     Active Substance: ADALIMUMAB
     Indication: CROHN^S DISEASE
     Route: 058
     Dates: start: 2010
  5. SODIUM CHLORIDE. [Concomitant]
     Active Substance: SODIUM CHLORIDE
     Indication: PRODUCT USED FOR UNKNOWN INDICATION
  6. MAGNESIUM OXIDE. [Concomitant]
     Active Substance: MAGNESIUM OXIDE
     Indication: PRODUCT USED FOR UNKNOWN INDICATION
  7. HUMIRA [Suspect]
     Active Substance: ADALIMUMAB
     Indication: PSORIASIS
     Route: 058
     Dates: start: 201505, end: 201511
  8. HUMIRA [Suspect]
     Active Substance: ADALIMUMAB
     Indication: RHEUMATOID ARTHRITIS
     Route: 058
     Dates: start: 201511
  9. KLOR-CON [Concomitant]
     Active Substance: POTASSIUM CHLORIDE
     Indication: PRODUCT USED FOR UNKNOWN INDICATION
  10. COLACE [Concomitant]
     Active Substance: DOCUSATE SODIUM
     Indication: PRODUCT USED FOR UNKNOWN INDICATION
  11. FLOMAX [Concomitant]
     Active Substance: TAMSULOSIN HYDROCHLORIDE
     Indication: PRODUCT USED FOR UNKNOWN INDICATION
  12. VALIUM [Concomitant]
     Active Substance: DIAZEPAM
     Indication: PRODUCT USED FOR UNKNOWN INDICATION
  13. MEDROL [Concomitant]
     Active Substance: METHYLPREDNISOLONE
     Indication: PRODUCT USED FOR UNKNOWN INDICATION
  14. HUMIRA [Suspect]
     Active Substance: ADALIMUMAB
     Route: 058
  15. HUMIRA [Suspect]
     Active Substance: ADALIMUMAB
     Route: 058
  16. HUMIRA [Suspect]
     Active Substance: ADALIMUMAB
     Route: 058
  17. DIAZEPAM. [Concomitant]
     Active Substance: DIAZEPAM
     Indication: PRODUCT USED FOR UNKNOWN INDICATION

REACTIONS (58)
  - Rectal perforation [Unknown]
  - Tooth extraction [Unknown]
  - Crohn^s disease [Recovered/Resolved]
  - Haemorrhoids [Unknown]
  - Stomatitis [Unknown]
  - Panic attack [Unknown]
  - Psoriasis [Not Recovered/Not Resolved]
  - Drug ineffective [Unknown]
  - Nasopharyngitis [Unknown]
  - Crohn^s disease [Not Recovered/Not Resolved]
  - Rectal ulcer [Unknown]
  - Anal fistula [Unknown]
  - Meniscus injury [Unknown]
  - Subcutaneous abscess [Recovered/Resolved]
  - Injection site pain [Not Recovered/Not Resolved]
  - Rash [Recovering/Resolving]
  - Large intestinal haemorrhage [Unknown]
  - Skin abrasion [Recovering/Resolving]
  - Post procedural complication [Not Recovered/Not Resolved]
  - Frequent bowel movements [Not Recovered/Not Resolved]
  - Constipation [Not Recovered/Not Resolved]
  - Intestinal mass [Unknown]
  - Stress [Unknown]
  - Fall [Unknown]
  - Oropharyngeal pain [Not Recovered/Not Resolved]
  - Haemorrhoids [Recovered/Resolved]
  - Meniscus injury [Not Recovered/Not Resolved]
  - Rheumatoid arthritis [Not Recovered/Not Resolved]
  - Proctalgia [Unknown]
  - Vaginal fistula [Unknown]
  - Vulvovaginal swelling [Unknown]
  - Condition aggravated [Unknown]
  - Osteoporosis [Unknown]
  - Proctalgia [Recovered/Resolved]
  - Rash [Unknown]
  - Dyschezia [Unknown]
  - Anal incontinence [Recovering/Resolving]
  - Anal abscess [Recovered/Resolved]
  - Skin cancer [Unknown]
  - Crohn^s disease [Recovered/Resolved]
  - Crohn^s disease [Recovered/Resolved]
  - Back pain [Not Recovered/Not Resolved]
  - Anorectal swelling [Unknown]
  - Haemorrhoids [Not Recovered/Not Resolved]
  - Body height decreased [Not Recovered/Not Resolved]
  - Wrong technique in product usage process [Unknown]
  - Anal ulcer haemorrhage [Unknown]
  - Anorectal discomfort [Not Recovered/Not Resolved]
  - Ocular hyperaemia [Unknown]
  - Palpitations [Unknown]
  - Arthritis [Unknown]
  - Nausea [Not Recovered/Not Resolved]
  - Anal fistula [Unknown]
  - Incorrect dose administered [Unknown]
  - Vulvovaginal swelling [Recovering/Resolving]
  - Fistula discharge [Unknown]
  - Proctalgia [Not Recovered/Not Resolved]
  - Arthralgia [Not Recovered/Not Resolved]

NARRATIVE: CASE EVENT DATE: 201402
